FAERS Safety Report 7633878-9 (Version None)
Quarter: 2011Q3

REPORT INFORMATION
  Report Type: 
  Country: None (occurrence: None)
  Receive Date: 20110714
  Receipt Date: 20101012
  Transmission Date: 20111222
  Serious: Yes (Death)
  Sender: FDA-Public Use
  Company Number: 2010SP054642

PATIENT
  Age: 70 Year
  Sex: Male

DRUGS (4)
  1. INTEGRILIN [Suspect]
     Indication: CORONARY ARTERIAL STENT INSERTION
  2. HEPARIN [Concomitant]
  3. ASPIRIN [Concomitant]
  4. PLAVIX [Concomitant]

REACTIONS (1)
  - GASTROINTESTINAL HAEMORRHAGE [None]
